FAERS Safety Report 12178982 (Version 1)
Quarter: 2016Q1

REPORT INFORMATION
  Report Type: Spontaneous
  Country: US (occurrence: US)
  Receive Date: 20160314
  Receipt Date: 20160314
  Transmission Date: 20160526
  Serious: No
  Sender: FDA-Public Use
  Company Number: US-SA-2016SA033278

PATIENT
  Age: 60 Year
  Sex: Male

DRUGS (5)
  1. APIDRA SOLOSTAR [Concomitant]
     Active Substance: INSULIN GLULISINE
  2. NOVOLIN [Concomitant]
     Active Substance: INSULIN HUMAN
  3. TOUJEO [Suspect]
     Active Substance: INSULIN GLARGINE
     Indication: TYPE 2 DIABETES MELLITUS
     Dosage: DOSE:40 UNIT(S)
     Route: 065
     Dates: start: 20160214
  4. HUMULIN NOS [Concomitant]
     Active Substance: INSULIN HUMAN
  5. SOLOSTAR [Concomitant]
     Active Substance: DEVICE
     Dates: start: 20160214

REACTIONS (4)
  - Hyperglycaemia [Not Recovered/Not Resolved]
  - Off label use [Unknown]
  - Hypoglycaemia [Not Recovered/Not Resolved]
  - Cold sweat [Not Recovered/Not Resolved]

NARRATIVE: CASE EVENT DATE: 20160214
